FAERS Safety Report 12191562 (Version 2)
Quarter: 2016Q3

REPORT INFORMATION
  Report Type: Spontaneous
  Country: US (occurrence: US)
  Receive Date: 20160318
  Receipt Date: 20160728
  Transmission Date: 20161109
  Serious: Yes (Hospitalization)
  Sender: FDA-Public Use
  Company Number: US-BEH-2016060014

PATIENT
  Age: 74 Year
  Sex: Male
  Weight: 77.11 kg

DRUGS (38)
  1. AMILORIDE [Concomitant]
     Active Substance: AMILORIDE
  2. POTASSIUM CHLORIDE. [Concomitant]
     Active Substance: POTASSIUM CHLORIDE
  3. MAGNESIUM [Concomitant]
     Active Substance: MAGNESIUM
  4. ASTEPRO [Concomitant]
     Active Substance: AZELASTINE HYDROCHLORIDE
  5. QUINIDINE SULFATE. [Concomitant]
     Active Substance: QUINIDINE SULFATE
  6. DOCUSATE SODIUM. [Concomitant]
     Active Substance: DOCUSATE SODIUM
  7. PRIVIGEN [Suspect]
     Active Substance: HUMAN IMMUNOGLOBULIN G
     Dosage: 35 G, QMT
     Route: 042
  8. HEPARIN [Concomitant]
     Active Substance: HEPARIN SODIUM
  9. DETROL LA [Concomitant]
     Active Substance: TOLTERODINE TARTRATE
  10. TRICOR [Concomitant]
     Active Substance: FENOFIBRATE
  11. LOPERAMIDE [Concomitant]
     Active Substance: LOPERAMIDE
  12. NASCOBAL [Concomitant]
     Active Substance: CYANOCOBALAMIN
  13. TAZTIA XT [Concomitant]
     Active Substance: DILTIAZEM HYDROCHLORIDE
  14. SINGULAIR [Concomitant]
     Active Substance: MONTELUKAST SODIUM
  15. PROMETHAZINE [Concomitant]
     Active Substance: PROMETHAZINE\PROMETHAZINE HYDROCHLORIDE
  16. NEXIUM [Concomitant]
     Active Substance: ESOMEPRAZOLE MAGNESIUM
  17. DIPHENHYDRAMINE. [Concomitant]
     Active Substance: DIPHENHYDRAMINE
  18. GABAPENTIN. [Concomitant]
     Active Substance: GABAPENTIN
  19. FERROUS SULFATE. [Concomitant]
     Active Substance: FERROUS SULFATE
  20. FEXOFENADINE [Concomitant]
     Active Substance: FEXOFENADINE\FEXOFENADINE HYDROCHLORIDE
  21. HYDROXYZINE [Concomitant]
     Active Substance: HYDROXYZINE\HYDROXYZINE HYDROCHLORIDE
  22. LASIX [Concomitant]
     Active Substance: FUROSEMIDE
  23. FOLIC ACID. [Concomitant]
     Active Substance: FOLIC ACID
  24. SYMBICORT [Concomitant]
     Active Substance: BUDESONIDE\FORMOTEROL FUMARATE DIHYDRATE
  25. VITAMIN B12 [Concomitant]
     Active Substance: CYANOCOBALAMIN
  26. PRIVIGEN [Suspect]
     Active Substance: HUMAN IMMUNOGLOBULIN G
     Dosage: 10 G VIAL
     Route: 042
  27. THEOPHYLLINE [Concomitant]
     Active Substance: THEOPHYLLINE ANHYDROUS
  28. FAMOTIDINE. [Concomitant]
     Active Substance: FAMOTIDINE
  29. HYDROCODONE-ACETAMINOPHEN [Concomitant]
     Active Substance: ACETAMINOPHEN\HYDROCODONE
  30. COUMADIN [Concomitant]
     Active Substance: WARFARIN SODIUM
  31. VITAMIN D [Concomitant]
     Active Substance: CHOLECALCIFEROL
  32. PRIVIGEN [Suspect]
     Active Substance: HUMAN IMMUNOGLOBULIN G
     Indication: IMMUNODEFICIENCY COMMON VARIABLE
     Dosage: 5 G VIAL
     Route: 042
  33. PRIVIGEN [Suspect]
     Active Substance: HUMAN IMMUNOGLOBULIN G
     Dosage: 20 G VIAL
     Route: 042
  34. SODIUM CHLORIDE. [Concomitant]
     Active Substance: SODIUM CHLORIDE
  35. EPIPEN [Concomitant]
     Active Substance: EPINEPHRINE
  36. PROAIR HFA [Concomitant]
     Active Substance: ALBUTEROL SULFATE
  37. SPIRONOLACTONE. [Concomitant]
     Active Substance: SPIRONOLACTONE
  38. ALLOPURINOL. [Concomitant]
     Active Substance: ALLOPURINOL

REACTIONS (1)
  - Intestinal obstruction [Recovered/Resolved]

NARRATIVE: CASE EVENT DATE: 201603
